FAERS Safety Report 15933876 (Version 2)
Quarter: 2019Q2

REPORT INFORMATION
  Report Type: Spontaneous
  Country: US (occurrence: US)
  Receive Date: 20190207
  Receipt Date: 20190402
  Transmission Date: 20190711
  Serious: No
  Sender: FDA-Public Use
  Company Number: US-SA-2019SA028239

PATIENT
  Age: 61 Year
  Sex: Female

DRUGS (2)
  1. LANTUS [Suspect]
     Active Substance: INSULIN GLARGINE
     Indication: TYPE 2 DIABETES MELLITUS
     Dosage: 24 U, QD
     Route: 065
     Dates: start: 20181111
  2. LANTUS [Suspect]
     Active Substance: INSULIN GLARGINE
     Dosage: 20 TO 30, DAILY

REACTIONS (3)
  - Product dose omission [Unknown]
  - Device issue [Unknown]
  - Incorrect dose administered [Unknown]
